FAERS Safety Report 25165612 (Version 2)
Quarter: 2025Q2

REPORT INFORMATION
  Report Type: Spontaneous
  Country: FR (occurrence: FR)
  Receive Date: 20250407
  Receipt Date: 20250620
  Transmission Date: 20250716
  Serious: Yes (Death, Other)
  Sender: IDORSIA PHARMACEUTICALS
  Company Number: FR-IDORSIA-009867-2025-FR

PATIENT
  Age: 67 Year
  Sex: Female

DRUGS (3)
  1. QUVIVIQ [Suspect]
     Active Substance: DARIDOREXANT
     Indication: Insomnia
     Route: 065
     Dates: start: 20250310, end: 20250322
  2. VALPROATE [Concomitant]
     Active Substance: VALPROIC ACID
     Dosage: 500 MG, BID
  3. VENLAFAXINE [Concomitant]
     Active Substance: VENLAFAXINE HYDROCHLORIDE
     Dosage: 75 MG, BID

REACTIONS (3)
  - Septic shock [Fatal]
  - Bone marrow failure [Fatal]
  - Pyelonephritis [Fatal]

NARRATIVE: CASE EVENT DATE: 20250301
